FAERS Safety Report 4602607-5 (Version None)
Quarter: 2005Q1

REPORT INFORMATION
  Report Type: 
  Country: None (occurrence: None)
  Receive Date: 20050307
  Receipt Date: 20041118
  Transmission Date: 20050727
  Serious: Yes (Hospitalization, Other)
  Sender: FDA-Public Use
  Company Number: 2004242987US

PATIENT
  Age: 60 Year
  Sex: Male
  Weight: 195 kg

DRUGS (2)
  1. CELEBREX [Suspect]
     Indication: BACK PAIN
     Dates: start: 19990101
  2. ALLOPURINOL [Concomitant]

REACTIONS (1)
  - DEEP VEIN THROMBOSIS [None]
